FAERS Safety Report 8455366-2 (Version None)
Quarter: 2012Q2

REPORT INFORMATION
  Report Type: 
  Country: None (occurrence: None)
  Receive Date: 20120621
  Receipt Date: 20120611
  Transmission Date: 20120825
  Serious: Yes (Death, Life-Threatening, Hospitalization)
  Sender: FDA-Public Use
  Company Number: DE-JNJFOC-20120410559

PATIENT
  Sex: Male

DRUGS (4)
  1. DIPYRONE TAB [Concomitant]
     Indication: PRODUCT USED FOR UNKNOWN INDICATION
     Route: 041
  2. PALEXIA RETARD [Suspect]
     Indication: SPINAL FRACTURE
     Route: 048
     Dates: start: 20120223, end: 20120227
  3. PALEXIA RETARD [Suspect]
     Indication: PAIN
     Route: 048
     Dates: start: 20120223, end: 20120227
  4. ALENDRON [Concomitant]
     Indication: OSTEOPOROSIS
     Route: 065

REACTIONS (1)
  - RENAL FAILURE [None]
